FAERS Safety Report 9610198 (Version 1)
Quarter: 2013Q4

REPORT INFORMATION
  Report Type: Spontaneous
  Country: US (occurrence: US)
  Receive Date: 20131009
  Receipt Date: 20131009
  Transmission Date: 20140711
  Serious: No
  Sender: FDA-Public Use
  Company Number: US-PURDUE-USA-2012-0096663

PATIENT
  Age: 61 Year
  Sex: Female

DRUGS (10)
  1. BUTRANS [Suspect]
     Indication: FIBROMYALGIA
     Dosage: 10 MCG, UNK
     Route: 062
     Dates: start: 20121201, end: 20121205
  2. EXCEDRIN                           /00391201/ [Concomitant]
     Indication: HEADACHE
  3. TRAMADOL                           /00599202/ [Concomitant]
     Indication: ARTHRALGIA
     Dosage: 300 MG, DAILY
     Route: 048
     Dates: end: 20121204
  4. TRAMADOL                           /00599202/ [Concomitant]
     Dosage: 200 MG, DAILY
     Route: 048
     Dates: start: 20121205
  5. BUSPAR [Concomitant]
     Indication: PRODUCT USED FOR UNKNOWN INDICATION
     Dosage: 10 MG, TID
     Route: 048
  6. CORTICOSTEROID NOS [Concomitant]
     Indication: ARTHRALGIA
     Dosage: 4 MG, BID (TAPER)
     Route: 048
  7. CLOZAPINE [Concomitant]
     Indication: PRODUCT USED FOR UNKNOWN INDICATION
     Dosage: 1 MG, TID
     Route: 048
  8. NEURONTIN [Concomitant]
     Indication: NEURALGIA
     Dosage: 300 MG, QID
     Route: 048
  9. PROZAC [Concomitant]
     Indication: PRODUCT USED FOR UNKNOWN INDICATION
     Dosage: 60 MG, DAILY
     Route: 048
  10. IBUPROFEN                          /00109205/ [Concomitant]
     Indication: ARTHRALGIA
     Dosage: 600 MG, TID
     Route: 048

REACTIONS (3)
  - Lethargy [Not Recovered/Not Resolved]
  - Pain [Unknown]
  - Headache [Not Recovered/Not Resolved]
